FAERS Safety Report 14348434 (Version 1)
Quarter: 2018Q1

REPORT INFORMATION
  Report Type: Spontaneous
  Country: SE (occurrence: SE)
  Receive Date: 20180103
  Receipt Date: 20180103
  Transmission Date: 20180509
  Serious: Yes (Life-Threatening, Hospitalization)
  Sender: FDA-Public Use
  Company Number: SE-BAUSCH-BL-2017-036061

PATIENT
  Age: 62 Year
  Sex: Male

DRUGS (4)
  1. CLINDAMYCIN. [Suspect]
     Active Substance: CLINDAMYCIN
     Indication: POST PROCEDURAL INFECTION
     Route: 048
  2. CEFADROXIL. [Suspect]
     Active Substance: CEFADROXIL
     Indication: TONSILLITIS
     Dosage: ONE DAY
     Route: 048
     Dates: start: 20171124, end: 20171127
  3. CANDESARTAN. [Suspect]
     Active Substance: CANDESARTAN
     Indication: HYPERTENSION
     Route: 048
     Dates: start: 20170301
  4. KAVEPENIN [Suspect]
     Active Substance: PHENOXYMETHYLPENICILLIN CALCIUM
     Indication: TONSILLITIS
     Route: 048
     Dates: start: 20171120, end: 20171124

REACTIONS (1)
  - Agranulocytosis [Not Recovered/Not Resolved]

NARRATIVE: CASE EVENT DATE: 20171127
